FAERS Safety Report 6345632-9 (Version None)
Quarter: 2009Q3

REPORT INFORMATION
  Report Type: 
  Country: None (occurrence: None)
  Receive Date: 20090909
  Receipt Date: 20090831
  Transmission Date: 20100115
  Serious: Yes (Other)
  Sender: FDA-Public Use
  Company Number: ZA-ABBOTT-09P-143-0594616-00

PATIENT
  Age: 11 Year
  Sex: Male

DRUGS (2)
  1. EPILIM TABLETS [Suspect]
     Indication: STATUS EPILEPTICUS
     Dosage: 200 TO 300 MG
  2. RIFAFOUR [Interacting]
     Indication: DRUG USE FOR UNKNOWN INDICATION
     Route: 048

REACTIONS (3)
  - CONVULSION [None]
  - DRUG INTERACTION [None]
  - DRUG LEVEL DECREASED [None]
